FAERS Safety Report 4666876-8 (Version None)
Quarter: 2005Q2

REPORT INFORMATION
  Report Type: 
  Country: None (occurrence: None)
  Receive Date: 20050518
  Receipt Date: 20050307
  Transmission Date: 20051028
  Serious: Yes (Other)
  Sender: FDA-Public Use
  Company Number: 2005013123

PATIENT
  Sex: Female

DRUGS (2)
  1. DEPO-PROVERA [Suspect]
     Indication: CONTRACEPTION
     Dosage: SEE IMAGE
     Route: 065
     Dates: start: 20040401, end: 20040401
  2. DEPO-PROVERA [Suspect]
     Indication: CONTRACEPTION
     Dosage: SEE IMAGE
     Route: 065
     Dates: start: 20040913, end: 20040913

REACTIONS (3)
  - ANXIETY [None]
  - DEPRESSION [None]
  - UNINTENDED PREGNANCY [None]
